FAERS Safety Report 21931062 (Version 1)
Quarter: 2023Q1

REPORT INFORMATION
  Report Type: Spontaneous
  Country: US (occurrence: None)
  Receive Date: 20230130
  Receipt Date: 20230130
  Transmission Date: 20230417
  Serious: Yes (Other)
  Sender: FDA-Public Use
  Company Number: None

PATIENT
  Age: 74 Year
  Sex: Male
  Weight: 74.84 kg

DRUGS (4)
  1. LEVOFLOXACIN [Suspect]
     Active Substance: LEVOFLOXACIN
     Indication: Infection
     Dosage: OTHER QUANTITY : 1 CAPSULE;?FREQUENCY : DAILY;?
     Route: 048
     Dates: start: 20230112, end: 20230117
  2. VASCEPA [Concomitant]
     Active Substance: ICOSAPENT ETHYL
  3. VITAMIN B12 [Concomitant]
     Active Substance: CYANOCOBALAMIN
  4. D12 [Concomitant]

REACTIONS (3)
  - Pain in extremity [None]
  - Muscle spasms [None]
  - Tendon rupture [None]

NARRATIVE: CASE EVENT DATE: 20230114
